FAERS Safety Report 9889088 (Version 2)
Quarter: 2014Q1

REPORT INFORMATION
  Report Type: Spontaneous
  Country: US (occurrence: None)
  Receive Date: 20140207
  Receipt Date: 20140219
  Transmission Date: 20141002
  Serious: Yes (Hospitalization)
  Sender: FDA-Public Use
  Company Number: 2014P1000888

PATIENT
  Age: 50 Year
  Sex: Female
  Weight: 67.59 kg

DRUGS (2)
  1. TROKENDI XR [Suspect]
     Indication: PARTIAL SEIZURES
     Route: 048
     Dates: start: 20131209, end: 20140125
  2. ESTRACE [Concomitant]

REACTIONS (2)
  - Dyskinesia [None]
  - Eye inflammation [None]
